FAERS Safety Report 19741292 (Version 11)
Quarter: 2022Q4

REPORT INFORMATION
  Report Type: Report from Study
  Country: CN (occurrence: None)
  Receive Date: 20210824
  Receipt Date: 20221201
  Transmission Date: 20230113
  Serious: Yes (Hospitalization)
  Sender: FDA-Public Use
  Company Number: CN-ROCHE-2895000

PATIENT
  Age: 60 Year
  Sex: Female
  Weight: 60 kg

DRUGS (19)
  1. TRASTUZUMAB [Suspect]
     Active Substance: TRASTUZUMAB
     Indication: HER2 positive breast cancer
     Dosage: DATE OF MOST RECENT DOSE: 23/JUL/2021 (488MG)
     Route: 041
     Dates: start: 20210723
  2. PERTUZUMAB [Suspect]
     Active Substance: PERTUZUMAB
     Indication: HER2 positive breast cancer
     Dosage: MOST RECENT DOSE 23/JUL/2021: 840MG
     Route: 042
     Dates: start: 20210723
  3. DOCETAXEL [Suspect]
     Active Substance: DOCETAXEL
     Indication: HER2 positive breast cancer
     Dosage: ON 23/JUL/2021,MOST RECENT DOSE OF DOCETAXEL PRIOR TO AE. 130MG
     Route: 042
     Dates: start: 20210723
  4. CYCLOPHOSPHAMIDE [Suspect]
     Active Substance: CYCLOPHOSPHAMIDE
     Indication: HER2 positive breast cancer
     Dosage: ON 02/JUL/2021, MOST RECENT DOSE OF CYCLOPHOSPHAMIDE PRIOR TO AE.
     Route: 042
     Dates: start: 20210430
  5. DOXORUBICIN [Suspect]
     Active Substance: DOXORUBICIN
     Indication: HER2 positive breast cancer
     Dosage: ON 02/JUL/2021, MOST RECENT DOSE OF DOXORUBICIN PRIOR TO AE.
     Route: 042
     Dates: start: 20210430
  6. LANSOPRAZOLE [Concomitant]
     Active Substance: LANSOPRAZOLE
     Route: 042
     Dates: start: 20210702, end: 20210702
  7. LANSOPRAZOLE [Concomitant]
     Active Substance: LANSOPRAZOLE
     Route: 042
     Dates: start: 20210723, end: 20210723
  8. METHYLPREDNISOLONE SODIUM SUCCINATE [Concomitant]
     Active Substance: METHYLPREDNISOLONE SODIUM SUCCINATE
     Indication: Hypersensitivity
     Route: 042
     Dates: start: 20210702, end: 20210702
  9. PALONOSETRON HYDROCHLORIDE [Concomitant]
     Active Substance: PALONOSETRON HYDROCHLORIDE
     Indication: Vomiting
     Route: 042
     Dates: start: 20210702, end: 20210702
  10. PALONOSETRON HYDROCHLORIDE [Concomitant]
     Active Substance: PALONOSETRON HYDROCHLORIDE
     Route: 042
     Dates: start: 20210723, end: 20210723
  11. SOLU-MEDROL [Concomitant]
     Active Substance: METHYLPREDNISOLONE SODIUM SUCCINATE
     Route: 042
     Dates: start: 20210723, end: 20210723
  12. PEGYLATED RECOMBINANT HUMAN GRANULOCYTE COLONY-STIMULATING FACTOR [Concomitant]
     Route: 058
     Dates: start: 20210704, end: 20210704
  13. DEXAMETHASONE ACETATE [Concomitant]
     Active Substance: DEXAMETHASONE ACETATE
     Route: 048
     Dates: start: 20210723, end: 20210723
  14. DEXAMETHASONE ACETATE [Concomitant]
     Active Substance: DEXAMETHASONE ACETATE
     Route: 048
     Dates: start: 20210807, end: 20210811
  15. GRANISETRON HYDROCHLORIDE [Concomitant]
     Active Substance: GRANISETRON HYDROCHLORIDE
     Route: 042
     Dates: start: 20210723, end: 20210723
  16. DESLORATADINE [Concomitant]
     Active Substance: DESLORATADINE
     Route: 048
     Dates: start: 20210728, end: 20210811
  17. FLUTICASONE PROPIONATE [Concomitant]
     Active Substance: FLUTICASONE PROPIONATE
     Route: 061
     Dates: start: 20210728, end: 20210812
  18. MUCOPOLYSACCHARIDE POLYSULFATE [Concomitant]
     Route: 061
     Dates: start: 20210728, end: 20210812
  19. VITAMIN C [Concomitant]
     Active Substance: ASCORBIC ACID
     Route: 048
     Dates: start: 20210817, end: 20210830

REACTIONS (2)
  - Aspartate aminotransferase increased [Recovered/Resolved]
  - Alanine aminotransferase increased [Recovered/Resolved]

NARRATIVE: CASE EVENT DATE: 20210722
